FAERS Safety Report 9139871 (Version 1)
Quarter: 2013Q1

REPORT INFORMATION
  Report Type: Spontaneous
  Country: US (occurrence: US)
  Receive Date: 20130305
  Receipt Date: 20130305
  Transmission Date: 20140127
  Serious: No
  Sender: FDA-Public Use
  Company Number: US-ENDO PHARMACEUTICALS INC.-SPLN20120163

PATIENT
  Age: 10 Year
  Sex: Female
  Weight: 40.96 kg

DRUGS (3)
  1. SUPPRELIN LA [Suspect]
     Indication: PRECOCIOUS PUBERTY
     Route: 058
     Dates: start: 20110505, end: 20120919
  2. PRO-AIR [Concomitant]
     Indication: PHARYNGITIS
     Dates: start: 20100823
  3. MULTIVITAMINS [Concomitant]
     Indication: SUPPLEMENTATION THERAPY
     Dosage: 1 TABLET
     Route: 048
     Dates: start: 20100111

REACTIONS (2)
  - Device breakage [Recovered/Resolved]
  - Procedural complication [Recovered/Resolved]
